FAERS Safety Report 6065316-4 (Version None)
Quarter: 2009Q1

REPORT INFORMATION
  Report Type: 
  Country: None (occurrence: None)
  Receive Date: 20090130
  Receipt Date: 20090120
  Transmission Date: 20090719
  Serious: Yes (Death, Life-Threatening, Hospitalization)
  Sender: FDA-Public Use
  Company Number: 000625

PATIENT
  Age: 60 Year
  Sex: Male

DRUGS (9)
  1. BUSULFEX [Suspect]
     Indication: STEM CELL TRANSPLANT
     Dosage: 9 ML, TID INTRAVENOUS ; 9 ML QID; INTRAVENOUS ; 9 ML, QD; INTRAVENOUS
     Route: 042
     Dates: start: 20070512, end: 20070512
  2. BUSULFEX [Suspect]
     Indication: STEM CELL TRANSPLANT
     Dosage: 9 ML, TID INTRAVENOUS ; 9 ML QID; INTRAVENOUS ; 9 ML, QD; INTRAVENOUS
     Route: 042
     Dates: start: 20070513, end: 20070513
  3. BUSULFEX [Suspect]
     Indication: STEM CELL TRANSPLANT
     Dosage: 9 ML, TID INTRAVENOUS ; 9 ML QID; INTRAVENOUS ; 9 ML, QD; INTRAVENOUS
     Route: 042
     Dates: start: 20070514, end: 20070514
  4. VALPROATE SODIUM [Concomitant]
  5. CYTARABINE [Concomitant]
  6. FLUDARABINE (FLUDARABINE) [Concomitant]
  7. FILGRASTIM (FILGRASTIM) [Concomitant]
  8. METHOTREXATE [Concomitant]
  9. TACROLIMUS [Concomitant]

REACTIONS (21)
  - ACUTE GRAFT VERSUS HOST DISEASE [None]
  - ANOREXIA [None]
  - BLOOD SODIUM DECREASED [None]
  - BONE MARROW TRANSPLANT REJECTION [None]
  - CARDIOVASCULAR DISORDER [None]
  - DIARRHOEA [None]
  - ESCHERICHIA SEPSIS [None]
  - FEBRILE NEUTROPENIA [None]
  - HAEMODIALYSIS [None]
  - HYPERBILIRUBINAEMIA [None]
  - HYPERNATRAEMIA [None]
  - MALAISE [None]
  - NAUSEA [None]
  - PRODUCTIVE COUGH [None]
  - RED BLOOD CELL COUNT DECREASED [None]
  - RENAL IMPAIRMENT [None]
  - RHABDOMYOLYSIS [None]
  - SEPSIS [None]
  - SEPTIC SHOCK [None]
  - STOMATITIS [None]
  - THROMBOTIC MICROANGIOPATHY [None]
